FAERS Safety Report 14198147 (Version 1)
Quarter: 2017Q4

REPORT INFORMATION
  Report Type: Spontaneous
  Country: US (occurrence: US)
  Receive Date: 20171117
  Receipt Date: 20171117
  Transmission Date: 20180321
  Serious: No
  Sender: FDA-Public Use
  Company Number: PHEH2017US037037

PATIENT
  Sex: Female

DRUGS (1)
  1. COSENTYX [Suspect]
     Active Substance: SECUKINUMAB
     Indication: PRODUCT USED FOR UNKNOWN INDICATION
     Dosage: 300 MG/ML, QW
     Route: 065

REACTIONS (5)
  - Pyrexia [Unknown]
  - Thinking abnormal [Unknown]
  - Nasopharyngitis [Unknown]
  - Malaise [Unknown]
  - Upper respiratory tract infection [Unknown]
